FAERS Safety Report 7736845-X (Version None)
Quarter: 2011Q3

REPORT INFORMATION
  Report Type: 
  Country: None (occurrence: None)
  Receive Date: 20110908
  Receipt Date: 20110908
  Transmission Date: 20111222
  Serious: No
  Sender: FDA-Public Use
  Company Number: None

PATIENT
  Age: 29 Year
  Sex: Female
  Weight: 54.431 kg

DRUGS (1)
  1. SUDAFED 12 HOUR [Suspect]
     Indication: MULTIPLE ALLERGIES
     Dosage: 2 TABLETS
     Route: 048
     Dates: start: 20110826, end: 20110826

REACTIONS (5)
  - EAR PAIN [None]
  - TINNITUS [None]
  - ABNORMAL SENSATION IN EYE [None]
  - VISUAL IMPAIRMENT [None]
  - NASAL OBSTRUCTION [None]
